FAERS Safety Report 22601794 (Version 1)
Quarter: 2023Q2

REPORT INFORMATION
  Report Type: Spontaneous
  Country: DK (occurrence: DK)
  Receive Date: 20230614
  Receipt Date: 20230614
  Transmission Date: 20230721
  Serious: Yes (Hospitalization)
  Sender: FDA-Public Use
  Company Number: None

PATIENT
  Age: 6 Year
  Sex: Female
  Weight: 23 kg

DRUGS (5)
  1. FYCOMPA [Suspect]
     Active Substance: PERAMPANEL
     Indication: Epilepsy
     Route: 048
     Dates: start: 20221228, end: 2023
  2. FYCOMPA [Suspect]
     Active Substance: PERAMPANEL
     Dosage: UPTITRATION TO 8 ML OVER 8 WEEKS
     Route: 048
     Dates: start: 2023, end: 20230314
  3. TOPIRAMATE [Concomitant]
     Active Substance: TOPIRAMATE
     Indication: Epilepsy
     Dosage: DOSE AND FREQUENCY UNKNOWN
     Route: 065
     Dates: start: 20210808
  4. FLUTICASONE PROPIONATE [Concomitant]
     Active Substance: FLUTICASONE PROPIONATE
     Indication: Asthma
     Dosage: DOSE AND FREQUENCY UNKNOWN
     Route: 065
     Dates: start: 202206
  5. VALPROATE SODIUM [Concomitant]
     Active Substance: VALPROATE SODIUM
     Indication: Epileptic encephalopathy
     Dosage: DOSE AND FREQUENCY UNKNOWN
     Route: 065
     Dates: start: 202110

REACTIONS (3)
  - Hypotonia [Unknown]
  - Respiratory failure [Recovered/Resolved]
  - Fatigue [Unknown]

NARRATIVE: CASE EVENT DATE: 20230201
